FAERS Safety Report 24858375 (Version 1)
Quarter: 2025Q1

REPORT INFORMATION
  Report Type: Spontaneous
  Country: JP (occurrence: JP)
  Receive Date: 20250117
  Receipt Date: 20250117
  Transmission Date: 20250409
  Serious: Yes (Hospitalization)
  Sender: ELI LILLY AND COMPANY
  Company Number: JP-ELI_LILLY_AND_COMPANY-JP202501005268

PATIENT
  Age: 55 Year
  Sex: Male

DRUGS (1)
  1. OLUMIANT [Suspect]
     Active Substance: BARICITINIB
     Indication: Dermatitis atopic
     Route: 048

REACTIONS (3)
  - Gastroenteritis salmonella [Unknown]
  - Salmonella bacteraemia [Recovering/Resolving]
  - Mediastinal abscess [Recovering/Resolving]
